FAERS Safety Report 8783954 (Version 1)
Quarter: 2012Q4

REPORT INFORMATION
  Report Type: Spontaneous
  Country: US (occurrence: None)
  Receive Date: 20120906
  Receipt Date: 20120906
  Transmission Date: 20130627
  Serious: Yes (Hospitalization)
  Sender: FDA-Public Use
  Company Number: None

PATIENT
  Sex: Male
  Weight: 95 kg

DRUGS (21)
  1. DAUNORUBICIN [Suspect]
  2. PEG-L-ASPARAGINASE (PEGASPARGASE, ONCOSPAR) [Suspect]
  3. VINCRISTINE SULFATE [Suspect]
  4. ACETYLEYSTEINE CAPSULE [Concomitant]
  5. AMIODARONE (CORDARONE) [Concomitant]
  6. AMIODARONE (PACERONE) [Concomitant]
  7. ARGATROBAN [Concomitant]
  8. ASPIRIN (ECOTRIN)EC [Concomitant]
  9. CALCIUM GLUCONATE [Concomitant]
  10. FAMOTIDINE (PEPCID) [Concomitant]
  11. HEPARIN (PORCINE) [Concomitant]
  12. KETOROLAC TROMETHAMINE (TORADOL) [Concomitant]
  13. MAGNESIUM SULFATE [Concomitant]
  14. METOCLOPRAMIDE HCI (REGLAN) [Concomitant]
  15. METOPROLOL TARTRATE (LOPRESSOR) [Concomitant]
  16. MORPHINE INJECTION [Concomitant]
  17. NITROGLYCERIN (NITROSTAT) [Concomitant]
  18. PANTOPRAZOLE (PROTONIX) EC [Concomitant]
  19. POTASSIUM CHLORIDE SA (K-DUR) [Concomitant]
  20. ROSUVASTATIN (CRESTOR) [Concomitant]
  21. TICAGRELOR (BRILINTA) [Concomitant]

REACTIONS (7)
  - Electrocardiogram ST segment elevation [None]
  - Chest pain [None]
  - Ventricular hypokinesia [None]
  - Coronary artery thrombosis [None]
  - Coronary artery occlusion [None]
  - Ventricular fibrillation [None]
  - Ventricular tachycardia [None]
